FAERS Safety Report 6530858-1 (Version None)
Quarter: 2010Q1

REPORT INFORMATION
  Report Type: 
  Country: None (occurrence: None)
  Receive Date: 20100108
  Receipt Date: 20090414
  Transmission Date: 20100710
  Serious: No
  Sender: FDA-Public Use
  Company Number: A0778727A

PATIENT
  Age: 47 Year
  Sex: Female

DRUGS (8)
  1. LOVAZA [Suspect]
     Dosage: 4G PER DAY
     Route: 048
     Dates: start: 20080101
  2. SYNTHROID [Concomitant]
  3. PROVIGIL [Concomitant]
  4. FUROSEMIDE [Concomitant]
  5. ASPIRIN [Concomitant]
  6. FOCALIN [Concomitant]
  7. CEREFOLIN WITH NAC [Concomitant]
  8. PRILOSEC [Concomitant]

REACTIONS (1)
  - BLOOD CALCIUM INCREASED [None]
